FAERS Safety Report 19137691 (Version 1)
Quarter: 2021Q2

REPORT INFORMATION
  Report Type: Report from Study
  Country: CA (occurrence: CA)
  Receive Date: 20210414
  Receipt Date: 20210414
  Transmission Date: 20210717
  Serious: Yes (Hospitalization, Other)
  Sender: FDA-Public Use
  Company Number: CA-BAUSCH-BL-2021-012065

PATIENT
  Age: 45 Year
  Sex: Female

DRUGS (17)
  1. MORPHINE [Suspect]
     Active Substance: MORPHINE
     Indication: LIVER DISORDER
     Route: 042
  2. MORPHINE [Suspect]
     Active Substance: MORPHINE
     Route: 065
  3. FLOVENT DISKUS [Suspect]
     Active Substance: FLUTICASONE PROPIONATE
     Indication: ASTHMA
     Route: 065
  4. TIOTROPIUM BROMIDE [Suspect]
     Active Substance: TIOTROPIUM BROMIDE
     Indication: PRODUCT USED FOR UNKNOWN INDICATION
     Route: 065
  5. ATROVENT [Suspect]
     Active Substance: IPRATROPIUM BROMIDE
     Indication: CHEST DISCOMFORT
     Route: 065
  6. MORPHINE [Suspect]
     Active Substance: MORPHINE
     Indication: BACK PAIN
     Route: 065
  7. MORPHINE [Suspect]
     Active Substance: MORPHINE
     Indication: ARTHRITIS
     Route: 065
  8. MORPHINE [Suspect]
     Active Substance: MORPHINE
     Route: 065
  9. PREDNISONE. [Suspect]
     Active Substance: PREDNISONE
     Indication: PRODUCT USED FOR UNKNOWN INDICATION
     Route: 065
  10. BUDESONIDE/FORMOTEROL FUMARATE [Suspect]
     Active Substance: BUDESONIDE\FORMOTEROL FUMARATE
     Indication: PRODUCT USED FOR UNKNOWN INDICATION
     Dosage: INHALATION
     Route: 065
  11. CLARITHROMYCIN. [Suspect]
     Active Substance: CLARITHROMYCIN
     Indication: PRODUCT USED FOR UNKNOWN INDICATION
     Route: 065
  12. MORPHINE [Suspect]
     Active Substance: MORPHINE
     Route: 065
  13. MORPHINE [Suspect]
     Active Substance: MORPHINE
     Route: 042
  14. MORPHINE [Suspect]
     Active Substance: MORPHINE
     Route: 065
  15. FLUTICASONE/SALMETEROL [Suspect]
     Active Substance: FLUTICASONE PROPIONATE\SALMETEROL XINAFOATE
     Indication: ASTHMA
     Route: 065
  16. MORPHINE [Suspect]
     Active Substance: MORPHINE
     Route: 042
  17. SALBUTAMOL SULFATE [Suspect]
     Active Substance: ALBUTEROL SULFATE
     Indication: PRODUCT USED FOR UNKNOWN INDICATION
     Route: 065

REACTIONS (14)
  - Rash [Unknown]
  - Dyspnoea [Unknown]
  - Pulmonary embolism [Unknown]
  - Chest discomfort [Unknown]
  - Psoriasis [Unknown]
  - Hypersensitivity [Unknown]
  - Arthritis [Unknown]
  - Gait inability [Unknown]
  - Pneumonia [Unknown]
  - Back pain [Unknown]
  - Hepatic enzyme increased [Unknown]
  - Liver disorder [Unknown]
  - Asthma [Unknown]
  - Pulmonary thrombosis [Unknown]
